FAERS Safety Report 8772627 (Version 1)
Quarter: 2012Q4

REPORT INFORMATION
  Report Type: 
  Country: ES (occurrence: ES)
  Receive Date: 20120830
  Receipt Date: 20120830
  Transmission Date: 20130627
  Serious: Yes (Hospitalization)
  Sender: FDA-Public Use
  Company Number: ES-ELI_LILLY_AND_COMPANY-ES201208008585

PATIENT
  Sex: Female

DRUGS (1)
  1. FORSTEO [Suspect]

REACTIONS (2)
  - Gastric disorder [Unknown]
  - Gallbladder operation [Unknown]
